FAERS Safety Report 8332389-5 (Version None)
Quarter: 2012Q1

REPORT INFORMATION
  Report Type: 
  Country: None (occurrence: None)
  Receive Date: 20120315
  Receipt Date: 20110304
  Transmission Date: 20120608
  Serious: No
  Sender: FDA-Public Use
  Company Number: PHHY2011US18841

PATIENT
  Age: 37 Year
  Sex: Female

DRUGS (6)
  1. #3. OMEPRAZOLE (OMEPRAZOLE) [Concomitant]
  2. #5. MEGACE (MEGESTROL ACETATE) [Concomitant]
  3. #1. NEURONTIN (GABAPENTIN) [Concomitant]
  4. AMBIEN [Suspect]
  5. GILENYA [Suspect]
     Indication: MULTIPLE SCLEROSIS
     Dosage: 0.5 MG, DAILY, ORAL
     Route: 048
     Dates: start: 20110207
  6. #4.  FLEXERIL (CYCLOBENZAPRINE HYDROCHLORIDE) [Concomitant]

REACTIONS (2)
  - DRUG ADMINISTRATION ERROR [None]
  - MALAISE [None]
